FAERS Safety Report 24574758 (Version 1)
Quarter: 2024Q4

REPORT INFORMATION
  Report Type: Report from Study
  Country: DE (occurrence: DE)
  Receive Date: 20241104
  Receipt Date: 20241104
  Transmission Date: 20250115
  Serious: Yes (Other)
  Sender: ABBVIE
  Company Number: DE-ABBVIE-4331885

PATIENT
  Age: 74 Year
  Sex: Male

DRUGS (6)
  1. RINVOQ [Suspect]
     Active Substance: UPADACITINIB
     Indication: Neurodermatitis
     Route: 048
     Dates: start: 20220331, end: 20241010
  2. RINVOQ [Suspect]
     Active Substance: UPADACITINIB
     Indication: Neurodermatitis
     Route: 048
     Dates: start: 20241025
  3. PROPRANOLOL [Concomitant]
     Active Substance: PROPRANOLOL HYDROCHLORIDE
     Indication: Tremor
     Dosage: TIME INTERVAL: 0.33333333 DAYS
     Route: 048
     Dates: start: 2014
  4. TAMSULOSIN [Concomitant]
     Active Substance: TAMSULOSIN
     Indication: Micturition urgency
     Route: 048
     Dates: start: 2023
  5. RAMIPRIL [Concomitant]
     Active Substance: RAMIPRIL
     Indication: Hypertension
     Route: 048
     Dates: start: 2018
  6. LERCANIDIPINE [Concomitant]
     Active Substance: LERCANIDIPINE
     Indication: Hypertension
     Route: 048
     Dates: start: 2018

REACTIONS (11)
  - Atrial fibrillation [Not Recovered/Not Resolved]
  - Cough [Recovering/Resolving]
  - Neurodermatitis [Not Recovered/Not Resolved]
  - Coronavirus infection [Recovered/Resolved]
  - Eye irritation [Unknown]
  - COVID-19 [Recovered/Resolved]
  - Nasopharyngitis [Recovering/Resolving]
  - Asthenia [Recovering/Resolving]
  - Myalgia [Unknown]
  - Burning sensation [Unknown]
  - Sneezing [Recovering/Resolving]

NARRATIVE: CASE EVENT DATE: 20230101
